FAERS Safety Report 8426378-X (Version None)
Quarter: 2012Q2

REPORT INFORMATION
  Report Type: 
  Country: None (occurrence: None)
  Receive Date: 20120611
  Receipt Date: 20120607
  Transmission Date: 20120825
  Serious: No
  Sender: FDA-Public Use
  Company Number: US-PFIZER INC-2012138380

PATIENT
  Sex: Female
  Weight: 119 kg

DRUGS (12)
  1. NAPROXEN [Suspect]
     Indication: ARTHRITIS
  2. CELEBREX [Suspect]
     Indication: SPONDYLITIS
  3. CELEBREX [Suspect]
     Indication: ARTHRITIS
  4. NAPROXEN [Suspect]
     Indication: SPONDYLITIS
  5. GABAPENTIN [Concomitant]
     Indication: NEURALGIA
     Dosage: 300 MG, AS NEEDED
  6. BUSPAR [Concomitant]
     Indication: ANXIETY
     Dosage: 5 MG, AS NEEDED
  7. CELEBREX [Suspect]
     Indication: FIBROMYALGIA
     Dosage: UNK
     Route: 048
  8. ADVIL [Suspect]
     Dosage: UNK
  9. VITAMIN B-12 [Concomitant]
     Indication: THYROID DISORDER
     Dosage: ^2500-5000 MCG^, AS NEEDED
  10. SYNTHROID [Concomitant]
     Indication: THYROID DISORDER
     Dosage: 100 UG, DAILY
     Route: 048
  11. SKELAXIN [Concomitant]
     Indication: NEURALGIA
     Dosage: 800 MG, AS NEEDED
     Route: 048
  12. NAPROXEN [Suspect]
     Indication: FIBROMYALGIA
     Dosage: UNK

REACTIONS (4)
  - WEIGHT INCREASED [None]
  - DRUG INEFFECTIVE [None]
  - EPIGASTRIC DISCOMFORT [None]
  - FEELING ABNORMAL [None]
